FAERS Safety Report 19262940 (Version 1)
Quarter: 2021Q2

REPORT INFORMATION
  Report Type: Other
  Country: JP (occurrence: JP)
  Receive Date: 20210517
  Receipt Date: 20210517
  Transmission Date: 20210717
  Serious: Yes (Other)
  Sender: FDA-Public Use
  Company Number: JP-ROCHE-2827961

PATIENT

DRUGS (2)
  1. RITUXIMAB. [Suspect]
     Active Substance: RITUXIMAB
     Indication: B-CELL LYMPHOMA
     Dosage: ON DAY 1
     Route: 042
  2. BENDAMUSTINE [Suspect]
     Active Substance: BENDAMUSTINE
     Indication: B-CELL LYMPHOMA
     Dosage: ON DAY 2 AND 3 OF EACH 28?DAYS CYCLE
     Route: 065

REACTIONS (10)
  - Atrial fibrillation [Unknown]
  - Infection [Unknown]
  - Neuropathy peripheral [Unknown]
  - Hepatic function abnormal [Unknown]
  - Cholecystitis [Unknown]
  - Cytopenia [Unknown]
  - Hypersensitivity [Unknown]
  - Vascular pain [Unknown]
  - Ileus paralytic [Unknown]
  - Pemphigus [Unknown]
